FAERS Safety Report 7457819-2 (Version None)
Quarter: 2011Q2

REPORT INFORMATION
  Report Type: 
  Country: None (occurrence: None)
  Receive Date: 20110504
  Receipt Date: 20110421
  Transmission Date: 20111010
  Serious: Yes (Other)
  Sender: FDA-Public Use
  Company Number: PHHY2011CA20147

PATIENT
  Sex: Male

DRUGS (10)
  1. ALTACE [Concomitant]
  2. ASAPHEN [Concomitant]
  3. BETA BLOCKING AGENTS [Concomitant]
  4. ACE INHIBITOR NOS [Concomitant]
  5. EZETIMIBE [Concomitant]
     Dosage: 10 MG, UNK
  6. CALCIUM CHANNEL BLOCKERS [Concomitant]
  7. SYNTHROID [Concomitant]
  8. ALISKIREN [Suspect]
     Indication: HYPERTENSION
     Dosage: 150 MG, QD
     Route: 048
     Dates: start: 20100323, end: 20110308
  9. NOVOLIN 70/30 [Concomitant]
     Route: 058
  10. CADUET [Concomitant]

REACTIONS (4)
  - HYPOTENSION [None]
  - ANGINA PECTORIS [None]
  - FATIGUE [None]
  - BLOOD PRESSURE DECREASED [None]
